FAERS Safety Report 16168234 (Version 1)
Quarter: 2019Q2

REPORT INFORMATION
  Report Type: Spontaneous
  Country: ES (occurrence: ES)
  Receive Date: 20190408
  Receipt Date: 20190408
  Transmission Date: 20190711
  Serious: Yes (Other)
  Sender: FDA-Public Use
  Company Number: ES-009507513-1904ESP001769

PATIENT
  Age: 86 Year
  Sex: Male

DRUGS (7)
  1. IVABRADINE [Concomitant]
     Active Substance: IVABRADINE
     Indication: ARRHYTHMIA PROPHYLAXIS
     Dosage: 5 MG/24H
     Route: 048
     Dates: start: 20180901
  2. AMLODIPINE [Concomitant]
     Active Substance: AMLODIPINE BESYLATE
     Indication: HYPERTENSION
     Dosage: 5 MG/24 H
     Route: 048
     Dates: start: 20180901
  3. OMEPRAZOLE. [Concomitant]
     Active Substance: OMEPRAZOLE
     Indication: ANTACID THERAPY
     Dosage: UNK
     Route: 048
     Dates: start: 20180901
  4. CEFDITOREN [Concomitant]
     Active Substance: CEFDITOREN
     Indication: ORCHITIS
     Dosage: 400 MG - 0 - 400 MG
     Route: 048
     Dates: start: 20190219
  5. FLECAINIDE ACETATE. [Concomitant]
     Active Substance: FLECAINIDE ACETATE
     Indication: ARRHYTHMIA PROPHYLAXIS
     Dosage: 50 MG/ 12 H
     Route: 048
     Dates: start: 20180901
  6. ACETAMINOPHEN. [Concomitant]
     Active Substance: ACETAMINOPHEN
     Indication: ANALGESIC THERAPY
     Dosage: 1000 MG - 1000 MG - 1000 MG
     Route: 048
     Dates: start: 20190201
  7. ONCOTICE [Suspect]
     Active Substance: BACILLUS CALMETTE-GUERIN SUBSTRAIN TICE LIVE ANTIGEN
     Indication: BLADDER TRANSITIONAL CELL CARCINOMA
     Dosage: 1 WEEKLY
     Route: 043
     Dates: start: 20181210, end: 20190304

REACTIONS (4)
  - Malaise [Recovered/Resolved]
  - Choluria [Recovered/Resolved]
  - Disseminated Bacillus Calmette-Guerin infection [Recovered/Resolved]
  - Pyrexia [Recovered/Resolved]

NARRATIVE: CASE EVENT DATE: 20190304
